FAERS Safety Report 24757474 (Version 1)
Quarter: 2024Q4

REPORT INFORMATION
  Report Type: Spontaneous
  Country: CZ (occurrence: CZ)
  Receive Date: 20241220
  Receipt Date: 20241220
  Transmission Date: 20250114
  Serious: Yes (Life-Threatening, Other)
  Sender: TAKEDA
  Company Number: CZ-TAKEDA-2024TUS123779

PATIENT
  Age: 6 Year
  Sex: Male

DRUGS (2)
  1. HYQVIA [Suspect]
     Active Substance: HUMAN IMMUNOGLOBULIN G\HYALURONIDASE (HUMAN RECOMBINANT)
     Indication: Product used for unknown indication
     Dosage: 50 MILLILITER
  2. Ospen [Concomitant]
     Dosage: UNK

REACTIONS (5)
  - Unresponsive to stimuli [Recovered/Resolved]
  - Productive cough [Recovered/Resolved]
  - Cyanosis [Recovered/Resolved]
  - Respiration abnormal [Recovered/Resolved]
  - Streptococcal infection [Unknown]

NARRATIVE: CASE EVENT DATE: 20240901
